FAERS Safety Report 5263633-9 (Version None)
Quarter: 2007Q1

REPORT INFORMATION
  Report Type: 
  Country: None (occurrence: None)
  Receive Date: 20070313
  Receipt Date: 20070305
  Transmission Date: 20070707
  Serious: Yes (Other)
  Sender: FDA-Public Use
  Company Number: US-JNJFOC-20070301218

PATIENT
  Age: 40 Year
  Sex: Female

DRUGS (13)
  1. REMICADE [Suspect]
     Indication: CROHN'S DISEASE
     Route: 042
  2. FLEXERIL [Concomitant]
  3. LORTAB [Concomitant]
  4. PENTASA [Concomitant]
  5. PREDNISONE [Concomitant]
  6. RESTORIL [Concomitant]
  7. PHENERGAN HCL [Concomitant]
  8. ZOLOFT [Concomitant]
  9. CALCIUM [Concomitant]
  10. VITAMIN D [Concomitant]
  11. ZYFOXIN [Concomitant]
  12. DOXEPIN HCL [Concomitant]
  13. PREVACID [Concomitant]

REACTIONS (3)
  - ANKLE FRACTURE [None]
  - OSTEOMYELITIS [None]
  - ROAD TRAFFIC ACCIDENT [None]
